FAERS Safety Report 9444581 (Version 1)
Quarter: 2013Q3

REPORT INFORMATION
  Report Type: Spontaneous
  Country: US (occurrence: US)
  Receive Date: 20130807
  Receipt Date: 20130807
  Transmission Date: 20140515
  Serious: No
  Sender: FDA-Public Use
  Company Number: US-PFIZER INC-2013228401

PATIENT
  Age: 69 Year
  Sex: Male
  Weight: 74.83 kg

DRUGS (3)
  1. LYRICA [Suspect]
     Indication: INTERVERTEBRAL DISC PROTRUSION
     Dosage: 75 MG, 1X/DAY
     Route: 048
     Dates: start: 20130730, end: 20130802
  2. CELEBREX [Concomitant]
     Dosage: UNK, 1X/DAY
  3. LIPITOR [Concomitant]
     Dosage: UNK, 1X/DAY

REACTIONS (3)
  - Anxiety [Unknown]
  - Feeling abnormal [Unknown]
  - Drug ineffective [Unknown]
